FAERS Safety Report 25509127 (Version 1)
Quarter: 2025Q3

REPORT INFORMATION
  Report Type: Report from Study
  Country: US (occurrence: US)
  Receive Date: 20250703
  Receipt Date: 20250703
  Transmission Date: 20251020
  Serious: Yes (Hospitalization)
  Sender: ROCHE
  Company Number: US-ROCHE-10000323305

PATIENT
  Age: 47 Year
  Sex: Male

DRUGS (3)
  1. AVASTIN [Suspect]
     Active Substance: BEVACIZUMAB
     Indication: Colon cancer
     Dosage: WITH FOLFOX
     Route: 042
     Dates: start: 2024, end: 20241231
  2. AVASTIN [Suspect]
     Active Substance: BEVACIZUMAB
     Indication: Metastasis
  3. FLUOROURACIL\LEUCOVORIN CALCIUM\OXALIPLATIN [Suspect]
     Active Substance: FLUOROURACIL\LEUCOVORIN CALCIUM\OXALIPLATIN
     Indication: Colon cancer
     Route: 042
     Dates: end: 20241231

REACTIONS (14)
  - Gait inability [Recovering/Resolving]
  - Asthenia [Recovering/Resolving]
  - Fall [Unknown]
  - Blood potassium decreased [Recovered/Resolved]
  - Neutropenia [Recovered/Resolved]
  - Dysstasia [Recovered/Resolved]
  - Muscle atrophy [Recovering/Resolving]
  - Malnutrition [Recovering/Resolving]
  - Blood electrolytes decreased [Recovered/Resolved]
  - Syncope [Recovered/Resolved]
  - Full blood count abnormal [Recovered/Resolved]
  - Intestinal obstruction [Recovered/Resolved]
  - Hypertension [Recovered/Resolved]
  - Illness [Unknown]

NARRATIVE: CASE EVENT DATE: 20240101
